FAERS Safety Report 11536909 (Version 1)
Quarter: 2015Q3

REPORT INFORMATION
  Report Type: Spontaneous
  Country: US (occurrence: None)
  Receive Date: 20150921
  Receipt Date: 20150921
  Transmission Date: 20151125
  Serious: Yes (Other)
  Sender: FDA-Public Use
  Company Number: None

PATIENT
  Age: 45 Year
  Sex: Female
  Weight: 83.01 kg

DRUGS (12)
  1. VIT. B COMPLEX [Concomitant]
  2. ESCITALOPRAM [Suspect]
     Active Substance: ESCITALOPRAM OXALATE
     Indication: DEPRESSION
     Dosage: TAKEN BY MOUTH
     Dates: start: 20150719, end: 20150719
  3. TYLENOL [Concomitant]
     Active Substance: ACETAMINOPHEN
  4. GENERIC PRILOSEC [Concomitant]
     Active Substance: OMEPRAZOLE MAGNESIUM
  5. MOTRIN [Concomitant]
     Active Substance: IBUPROFEN
  6. LOESTRIN NOS [Concomitant]
     Active Substance: ETHINYL ESTRADIOL\NORETHINDRONE ACETATE
  7. ESCITALOPRAM [Suspect]
     Active Substance: ESCITALOPRAM OXALATE
     Indication: ANXIETY
     Dosage: TAKEN BY MOUTH
     Dates: start: 20150719, end: 20150719
  8. PRAMIPEXOLE. [Suspect]
     Active Substance: PRAMIPEXOLE
     Indication: RESTLESS LEGS SYNDROME
     Dosage: AT BEDTIME, TAKEN BY MOUTH
     Dates: start: 20150724, end: 20150919
  9. PRAMIPEXOLE. [Suspect]
     Active Substance: PRAMIPEXOLE
     Indication: NAUSEA
     Dosage: AT BEDTIME, TAKEN BY MOUTH
     Dates: start: 20150724, end: 20150919
  10. TRAMADOL. [Concomitant]
     Active Substance: TRAMADOL
  11. MULTIVITAMIN [Concomitant]
     Active Substance: VITAMINS
  12. IRON [Concomitant]
     Active Substance: IRON

REACTIONS (1)
  - Weight increased [None]

NARRATIVE: CASE EVENT DATE: 20150919
